FAERS Safety Report 7994226-8 (Version None)
Quarter: 2011Q4

REPORT INFORMATION
  Report Type: 
  Country: None (occurrence: None)
  Receive Date: 20111220
  Receipt Date: 20111212
  Transmission Date: 20120403
  Serious: Yes (Death, Hospitalization)
  Sender: FDA-Public Use
  Company Number: ES-UCBSA-047690

PATIENT
  Age: 21 Year
  Sex: Male

DRUGS (5)
  1. PIPERACILLIN AND TAZOBACTAM [Suspect]
     Dosage: UNKNOWN DOSE
  2. LINEZOLID [Suspect]
     Dosage: UNKNOWN DOSE
  3. LEVETIRACETAM [Suspect]
     Dosage: UNKNOWN DOSE
  4. CASPOFUNGIN ACETATE [Suspect]
     Dosage: UNKNOWN DOSE
  5. ACYCLOVIR [Suspect]
     Dosage: UNKNOWN DOSE

REACTIONS (1)
  - DRUG RASH WITH EOSINOPHILIA AND SYSTEMIC SYMPTOMS [None]
